FAERS Safety Report 19068111 (Version 3)
Quarter: 2022Q3

REPORT INFORMATION
  Report Type: Spontaneous
  Country: JP (occurrence: JP)
  Receive Date: 20210329
  Receipt Date: 20220714
  Transmission Date: 20221027
  Serious: No
  Sender: FDA-Public Use
  Company Number: JP-GSKNCCC-CASE-01175002_AE-42396

PATIENT

DRUGS (3)
  1. DUTASTERIDE [Suspect]
     Active Substance: DUTASTERIDE
     Indication: Benign prostatic hyperplasia
     Dosage: UNK
     Route: 050
  2. DUTASTERIDE [Suspect]
     Active Substance: DUTASTERIDE
     Indication: Condition aggravated
  3. DUTASTERIDE [Suspect]
     Active Substance: DUTASTERIDE
     Indication: Dysuria

REACTIONS (1)
  - Intercepted product prescribing error [Unknown]
